FAERS Safety Report 22587125 (Version 1)
Quarter: 2023Q2

REPORT INFORMATION
  Report Type: Spontaneous
  Country: US (occurrence: None)
  Receive Date: 20230612
  Receipt Date: 20230612
  Transmission Date: 20230721
  Serious: No
  Sender: FDA-Public Use
  Company Number: 2023A134473

PATIENT
  Sex: Female

DRUGS (2)
  1. FARXIGA [Suspect]
     Active Substance: DAPAGLIFLOZIN PROPANEDIOL
     Route: 048
  2. MONISTAT [Suspect]
     Active Substance: MICONAZOLE NITRATE

REACTIONS (4)
  - Fungal infection [Recovered/Resolved]
  - Genital pain [Recovered/Resolved]
  - Genital burning sensation [Recovered/Resolved]
  - Drug ineffective [Unknown]
